FAERS Safety Report 5917093-2 (Version None)
Quarter: 2008Q4

REPORT INFORMATION
  Report Type: 
  Country: None (occurrence: None)
  Receive Date: 20081014
  Receipt Date: 20081009
  Transmission Date: 20090506
  Serious: Yes (Death)
  Sender: FDA-Public Use
  Company Number: GB-ALLERGAN-0812819US

PATIENT
  Sex: Male

DRUGS (1)
  1. DYSPORT [Suspect]
     Indication: DROOLING

REACTIONS (1)
  - PNEUMONIA ASPIRATION [None]
